FAERS Safety Report 5704143-1 (Version None)
Quarter: 2008Q2

REPORT INFORMATION
  Report Type: 
  Country: None (occurrence: None)
  Receive Date: 20080414
  Receipt Date: 20080403
  Transmission Date: 20081010
  Serious: Yes (Death, Hospitalization, Other)
  Sender: FDA-Public Use
  Company Number: HQWYE410922OCT03

PATIENT
  Sex: Female

DRUGS (2)
  1. PREMARIN [Suspect]
     Dosage: UNSPECIFIED DOSAGE FOR A NUMBER OF YEARS, DAILY
     Route: 048
     Dates: start: 19800101
  2. PREMPRO [Suspect]
     Dosage: UNSPECIFIED DOSAGE DAILY FOR A NUMBER OF YEARS
     Route: 048

REACTIONS (1)
  - OVARIAN CANCER METASTATIC [None]
